FAERS Safety Report 23461030 (Version 1)
Quarter: 2024Q1

REPORT INFORMATION
  Report Type: Spontaneous
  Country: US (occurrence: US)
  Receive Date: 20240131
  Receipt Date: 20240131
  Transmission Date: 20240409
  Serious: Yes (Hospitalization)
  Sender: FDA-Public Use
  Company Number: US-E2BLSMVVAL-SPO/USA/24/0001753

PATIENT
  Age: 63 Year
  Sex: Male

DRUGS (11)
  1. CLOZAPINE [Suspect]
     Active Substance: CLOZAPINE
     Indication: Schizophrenia
     Dates: start: 20211210
  2. CLOZAPINE [Suspect]
     Active Substance: CLOZAPINE
     Dates: start: 20211210
  3. TAMSULOSIN [Concomitant]
     Active Substance: TAMSULOSIN
  4. JANUVIA [Concomitant]
     Active Substance: SITAGLIPTIN PHOSPHATE
  5. FAMOTIDINE [Concomitant]
     Active Substance: FAMOTIDINE
  6. Invega sustana [Concomitant]
  7. LEVETIRACETAM [Concomitant]
     Active Substance: LEVETIRACETAM
  8. VITAMINS [Concomitant]
     Active Substance: VITAMINS
  9. ASPIRIN [Concomitant]
     Active Substance: ASPIRIN
  10. LOSARTAN [Concomitant]
     Active Substance: LOSARTAN
  11. VITAMIN D [Concomitant]
     Active Substance: VITAMIN D NOS

REACTIONS (1)
  - Hospitalisation [Unknown]

NARRATIVE: CASE EVENT DATE: 20211217
